FAERS Safety Report 9630013 (Version 1)
Quarter: 2013Q4

REPORT INFORMATION
  Report Type: Spontaneous
  Country: JP (occurrence: JP)
  Receive Date: 20131017
  Receipt Date: 20131017
  Transmission Date: 20140711
  Serious: Yes (Other)
  Sender: FDA-Public Use
  Company Number: JP-EISAI INC-E2090-02914-SPO-JP

PATIENT
  Age: 65 Year
  Sex: Female

DRUGS (1)
  1. EXCEGRAN [Suspect]
     Indication: PRODUCT USED FOR UNKNOWN INDICATION
     Dosage: UNKNOWN
     Route: 048
     Dates: start: 201011, end: 201011

REACTIONS (1)
  - Oculomucocutaneous syndrome [Unknown]
